FAERS Safety Report 17137475 (Version 6)
Quarter: 2020Q3

REPORT INFORMATION
  Report Type: Spontaneous
  Country: FR (occurrence: FR)
  Receive Date: 20191210
  Receipt Date: 20200922
  Transmission Date: 20201102
  Serious: Yes (Hospitalization, Other)
  Sender: FDA-Public Use
  Company Number: FR-SUN PHARMACEUTICAL INDUSTRIES LTD-2019RR-230170

PATIENT
  Age: 79 Year
  Sex: Female
  Weight: 65 kg

DRUGS (4)
  1. IBRANCE [Suspect]
     Active Substance: PALBOCICLIB
     Indication: BREAST CANCER METASTATIC
  2. IBRANCE [Suspect]
     Active Substance: PALBOCICLIB
     Dosage: 125 MG, CYCLIC, 3 WEEKS OUT OF 4 ; CYCLICAL
     Route: 065
     Dates: start: 20190427, end: 20190517
  3. LETROZOLE. [Suspect]
     Active Substance: LETROZOLE
     Indication: METASTASES TO CENTRAL NERVOUS SYSTEM
     Dosage: UNK ()
     Route: 048
     Dates: start: 20190427, end: 20190522
  4. LETROZOLE. [Suspect]
     Active Substance: LETROZOLE
     Indication: BREAST CANCER METASTATIC

REACTIONS (2)
  - Thrombocytopenia [Not Recovered/Not Resolved]
  - Febrile neutropenia [Recovered/Resolved]

NARRATIVE: CASE EVENT DATE: 20190509
